FAERS Safety Report 22593107 (Version 1)
Quarter: 2023Q2

REPORT INFORMATION
  Report Type: Spontaneous
  Country: US (occurrence: None)
  Receive Date: 20230613
  Receipt Date: 20230613
  Transmission Date: 20230721
  Serious: Yes (Other)
  Sender: FDA-Public Use
  Company Number: US-MICRO LABS LIMITED-ML2023-03206

PATIENT
  Age: 17 Year
  Sex: Male

DRUGS (1)
  1. DIPHENHYDRAMINE HYDROCHLORIDE [Suspect]
     Active Substance: DIPHENHYDRAMINE HYDROCHLORIDE
     Indication: Product used for unknown indication
     Dosage: INGESTED 1200 MG OF DIPHENHYDRAMINE
     Route: 048

REACTIONS (7)
  - Agitation [Unknown]
  - Toxicity to various agents [Recovered/Resolved]
  - Vomiting [Recovered/Resolved]
  - Confusional state [Recovered/Resolved]
  - Mucosal dryness [Recovered/Resolved]
  - Tachycardia [Recovered/Resolved]
  - Urinary retention [Recovered/Resolved]
